FAERS Safety Report 14201173 (Version 2)
Quarter: 2018Q3

REPORT INFORMATION
  Report Type: Spontaneous
  Country: US (occurrence: US)
  Receive Date: 20171117
  Receipt Date: 20180918
  Transmission Date: 20181010
  Serious: Yes (Death)
  Sender: FDA-Public Use
  Company Number: PHEH2017US037241

PATIENT
  Age: 14 Year
  Sex: Female

DRUGS (1)
  1. KYMRIAH [Suspect]
     Active Substance: TISAGENLECLEUCEL
     Indication: ACUTE LYMPHOCYTIC LEUKAEMIA
     Dosage: 1 DF, UNK
     Route: 042
     Dates: start: 20171109

REACTIONS (2)
  - Acute lymphocytic leukaemia [Fatal]
  - Malignant neoplasm progression [Fatal]
